FAERS Safety Report 13576354 (Version 2)
Quarter: 2017Q2

REPORT INFORMATION
  Report Type: Spontaneous
  Country: US (occurrence: US)
  Receive Date: 20170524
  Receipt Date: 20170601
  Transmission Date: 20170830
  Serious: Yes (Other)
  Sender: FDA-Public Use
  Company Number: US-ASTRAZENECA-2017SE53574

PATIENT
  Age: 68 Year
  Sex: Male
  Weight: 86.2 kg

DRUGS (9)
  1. RANITIDINE. [Concomitant]
     Active Substance: RANITIDINE
     Indication: ABDOMINAL DISCOMFORT
  2. DILTIAZEM. [Concomitant]
     Active Substance: DILTIAZEM
     Indication: BLOOD PRESSURE ABNORMAL
  3. LIPITOR [Concomitant]
     Active Substance: ATORVASTATIN CALCIUM
  4. BYDUREON [Suspect]
     Active Substance: EXENATIDE
     Indication: TYPE 2 DIABETES MELLITUS
     Route: 065
     Dates: start: 20170419
  5. BYDUREON [Suspect]
     Active Substance: EXENATIDE
     Indication: TYPE 2 DIABETES MELLITUS
     Route: 065
     Dates: start: 2015, end: 201702
  6. LISINOPRIL. [Suspect]
     Active Substance: LISINOPRIL
     Indication: BLOOD PRESSURE ABNORMAL
     Route: 048
     Dates: start: 1997
  7. LEVOTHYROXINE. [Concomitant]
     Active Substance: LEVOTHYROXINE
     Indication: THYROID DISORDER
     Dosage: 0.05MG UNKNOWN
  8. HUMALIN [Concomitant]
     Active Substance: INSULIN NOS
  9. LANTUS [Concomitant]
     Active Substance: INSULIN GLARGINE

REACTIONS (12)
  - Arthralgia [Unknown]
  - Device damage [Unknown]
  - Device malfunction [Unknown]
  - Lymphoma [Not Recovered/Not Resolved]
  - Leukaemia [Not Recovered/Not Resolved]
  - Blood glucose fluctuation [Unknown]
  - Product physical consistency issue [Unknown]
  - Bronchitis [Unknown]
  - Glycosylated haemoglobin increased [Unknown]
  - Dizziness [Unknown]
  - Atypical pneumonia [Unknown]
  - Drug dose omission [Unknown]

NARRATIVE: CASE EVENT DATE: 2016
